FAERS Safety Report 23379218 (Version 3)
Quarter: 2024Q1

REPORT INFORMATION
  Report Type: Report from Study
  Country: US (occurrence: US)
  Receive Date: 20240108
  Receipt Date: 20240327
  Transmission Date: 20240410
  Serious: Yes (Hospitalization)
  Sender: FDA-Public Use
  Company Number: US-THERATECHNOLOGIES INC.-2023-THE-IBA-000535

PATIENT

DRUGS (19)
  1. IBALIZUMAB [Suspect]
     Active Substance: IBALIZUMAB
     Indication: HIV infection
     Dosage: 2000 MG, SINGLE
     Route: 042
     Dates: start: 20231101, end: 20231101
  2. IBALIZUMAB [Suspect]
     Active Substance: IBALIZUMAB
     Dosage: 800 MG, EVERY OTHER WEEK, IV PUSH
     Route: 042
     Dates: start: 20231114
  3. IBALIZUMAB [Suspect]
     Active Substance: IBALIZUMAB
     Dosage: 800 MG, EVERY OTHER WEEK, IV PUSH
     Route: 042
     Dates: start: 20231101
  4. DORAVIRINE [Concomitant]
     Active Substance: DORAVIRINE
     Indication: Antiretroviral therapy
     Dosage: 100 MG, QD
     Route: 048
     Dates: start: 20181106
  5. DARUNAVIR [Concomitant]
     Active Substance: DARUNAVIR
     Indication: Antiretroviral therapy
     Dosage: 800 MG, QD
     Route: 048
     Dates: start: 20191223
  6. DARUNAVIR [Concomitant]
     Active Substance: DARUNAVIR
     Dosage: 800MG/150MG200MG/10MG
     Route: 048
     Dates: start: 20231218, end: 20231219
  7. DARUNAVIR [Concomitant]
     Active Substance: DARUNAVIR
     Dosage: 800MG/150MG200MG/10MG
     Route: 048
     Dates: start: 20231219
  8. COBICISTAT [Concomitant]
     Active Substance: COBICISTAT
     Indication: Antiretroviral therapy
     Dosage: 150 MG, QD
     Route: 048
     Dates: start: 20220308
  9. EMTRICITABINE [Concomitant]
     Active Substance: EMTRICITABINE
     Indication: Antiretroviral therapy
     Dosage: 200 MG, QD
     Route: 048
     Dates: start: 20150629
  10. TENOFOVIR ALAFENAMIDE [Concomitant]
     Active Substance: TENOFOVIR ALAFENAMIDE
     Indication: Antiretroviral therapy
     Dosage: 10 MG, QD
     Route: 048
     Dates: start: 20121214
  11. VITAMINS NOS [Concomitant]
     Active Substance: VITAMINS
     Indication: Prophylaxis
     Dosage: 1 GUMMY, QD
     Route: 048
  12. ACETAMINOPHEN [Concomitant]
     Active Substance: ACETAMINOPHEN
     Indication: Arthralgia
     Dosage: 650 MG, Q8H, PRN
     Route: 048
     Dates: start: 20230818
  13. ACETAMINOPHEN [Concomitant]
     Active Substance: ACETAMINOPHEN
     Indication: Arthralgia
     Dosage: 325 MG, PRN
     Route: 048
     Dates: start: 20220722
  14. ACETAMINOPHEN [Concomitant]
     Active Substance: ACETAMINOPHEN
     Indication: Tooth abscess
     Dosage: 1000 MG, QD
     Route: 042
     Dates: start: 20231216, end: 20231216
  15. ACETAMINOPHEN [Concomitant]
     Active Substance: ACETAMINOPHEN
     Indication: Pain
     Dosage: 1000 MG, EVERY 8 HRS
     Route: 042
     Dates: start: 20231217, end: 20231218
  16. ACETAMINOPHEN [Concomitant]
     Active Substance: ACETAMINOPHEN
     Dosage: EVERY 6 HRS
     Route: 048
     Dates: start: 20231218, end: 20240118
  17. DICLOFENAC SODIUM [Concomitant]
     Active Substance: DICLOFENAC\DICLOFENAC SODIUM
     Indication: Arthralgia
     Dosage: 2 G, QID, UP TO QID, PRN
     Route: 061
     Dates: start: 20230818
  18. METRONIDAZOLE [Concomitant]
     Active Substance: METRONIDAZOLE
     Indication: Bacterial vaginosis
     Dosage: 500 MG, BID
     Route: 048
     Dates: start: 20231026, end: 20231102
  19. VALACYCLOVIR HYDROCHLORIDE [Concomitant]
     Active Substance: VALACYCLOVIR HYDROCHLORIDE
     Indication: Herpes simplex
     Dosage: 1000 MG, BID
     Route: 048
     Dates: start: 20231026, end: 20231218

REACTIONS (1)
  - Tooth abscess [Recovering/Resolving]

NARRATIVE: CASE EVENT DATE: 20231216
